FAERS Safety Report 20344945 (Version 1)
Quarter: 2022Q1

REPORT INFORMATION
  Report Type: Spontaneous
  Country: US (occurrence: None)
  Receive Date: 20220114
  Receipt Date: 20220114
  Transmission Date: 20220423
  Serious: Yes (Other)
  Sender: FDA-Public Use
  Company Number: None

PATIENT
  Age: 40 Year
  Sex: Female
  Weight: 54 kg

DRUGS (7)
  1. REGEN-COV [Suspect]
     Active Substance: CASIRIVIMAB\IMDEVIMAB
     Indication: COVID-19 treatment
     Route: 042
     Dates: start: 20211217, end: 20211217
  2. VITAMINS [Concomitant]
     Active Substance: VITAMINS
  3. UBIQUINOL [Concomitant]
     Active Substance: UBIQUINOL
  4. VITAMIN D [Concomitant]
     Active Substance: VITAMIN D NOS
  5. CURCUMIN [Concomitant]
     Active Substance: CURCUMIN
  6. FISH OIL [Concomitant]
     Active Substance: FISH OIL
  7. MAGNESIUM [Concomitant]
     Active Substance: MAGNESIUM

REACTIONS (3)
  - Rash pruritic [None]
  - Drug hypersensitivity [None]
  - Dry skin [None]

NARRATIVE: CASE EVENT DATE: 20211219
